FAERS Safety Report 10253352 (Version 1)
Quarter: 2014Q2

REPORT INFORMATION
  Report Type: Spontaneous
  Country: US (occurrence: None)
  Receive Date: 20140619
  Receipt Date: 20140619
  Transmission Date: 20141212
  Serious: Yes (Hospitalization, Disabling, Other)
  Sender: FDA-Public Use
  Company Number: None

PATIENT
  Age: 30 Year
  Sex: Female
  Weight: 63.5 kg

DRUGS (3)
  1. CLONAZEPAM [Suspect]
     Indication: PANIC DISORDER
     Dosage: 1 MG, 30 PILLS, ONCE A DAY AS NEEDED, BY MOUTH
     Route: 048
     Dates: start: 201106
  2. CLONAZEPAM [Suspect]
     Indication: ANXIETY DISORDER
     Dosage: 1 MG, 30 PILLS, ONCE A DAY AS NEEDED, BY MOUTH
     Route: 048
     Dates: start: 201106
  3. CLONAZEPAM [Suspect]
     Indication: POST-TRAUMATIC STRESS DISORDER
     Dosage: 1 MG, 30 PILLS, ONCE A DAY AS NEEDED, BY MOUTH
     Route: 048
     Dates: start: 201106

REACTIONS (39)
  - Drug dependence [None]
  - Anxiety [None]
  - Paranoia [None]
  - Agoraphobia [None]
  - Hypochondriasis [None]
  - Mood swings [None]
  - Menstruation irregular [None]
  - Weight increased [None]
  - Weight decreased [None]
  - Pain [None]
  - Alopecia [None]
  - Vision blurred [None]
  - Vertigo [None]
  - Gastrooesophageal reflux disease [None]
  - Urinary tract infection [None]
  - Nausea [None]
  - Diarrhoea [None]
  - Constipation [None]
  - Confusional state [None]
  - Amnesia [None]
  - Loss of consciousness [None]
  - Arthritis [None]
  - Hypoaesthesia [None]
  - Joint swelling [None]
  - Migraine [None]
  - Dysarthria [None]
  - Convulsion [None]
  - Ear discomfort [None]
  - Paranasal sinus discomfort [None]
  - Pyrexia [None]
  - Retching [None]
  - Muscle spasms [None]
  - Dyskinesia [None]
  - Drug hypersensitivity [None]
  - Fear [None]
  - Exostosis [None]
  - Arthritis [None]
  - Erythema [None]
  - Psychotic disorder [None]
